FAERS Safety Report 23116584 (Version 1)
Quarter: 2023Q4

REPORT INFORMATION
  Report Type: Spontaneous
  Country: DE (occurrence: DE)
  Receive Date: 20231027
  Receipt Date: 20231027
  Transmission Date: 20240109
  Serious: Yes (Hospitalization, Other)
  Sender: FDA-Public Use
  Company Number: DE-TEVA-2023-DE-2940815

PATIENT
  Sex: Female

DRUGS (5)
  1. PROGESTERONE [Suspect]
     Active Substance: PROGESTERONE
     Indication: Assisted reproductive technology
     Dosage: 800 MILLIGRAM DAILY; 14TH TO 31ST DAY OF CYCLE
     Route: 065
  2. FOLLITROPIN ALFA [Suspect]
     Active Substance: FOLLITROPIN ALFA
     Indication: Product used for unknown indication
     Dosage: 10TH DAY OF CYCLE
     Route: 065
  3. GANIRELIX [Suspect]
     Active Substance: GANIRELIX
     Indication: Product used for unknown indication
     Dosage: 7TH TO 10TH DAY OF CYCLE
     Route: 065
  4. CHORIOGONADOTROPIN ALFA [Suspect]
     Active Substance: CHORIOGONADOTROPIN ALFA
     Indication: Product used for unknown indication
     Dosage: 11TH DAY OF CYCLE
     Route: 065
  5. FOLLITROPIN ALFA [Suspect]
     Active Substance: FOLLITROPIN ALFA
     Indication: Product used for unknown indication
     Dosage: 3RD TO 9TH DAY OF CYCLE
     Route: 065

REACTIONS (1)
  - Ovarian hyperstimulation syndrome [Unknown]
